FAERS Safety Report 9165685 (Version 2)
Quarter: 2013Q2

REPORT INFORMATION
  Report Type: Report from Study
  Country: US (occurrence: US)
  Receive Date: 20130315
  Receipt Date: 20130415
  Transmission Date: 20140414
  Serious: Yes (Other)
  Sender: FDA-Public Use
  Company Number: US-ROCHE-1199593

PATIENT
  Age: 78 Year
  Sex: Male

DRUGS (1)
  1. LUCENTIS [Suspect]
     Indication: MACULAR DEGENERATION
     Dosage: 0.5
     Route: 050
     Dates: start: 20130103

REACTIONS (5)
  - Blindness unilateral [Unknown]
  - Blindness [Unknown]
  - Eye haemorrhage [Unknown]
  - Eye pain [Unknown]
  - Medication error [Unknown]
